FAERS Safety Report 7927769-3 (Version None)
Quarter: 2011Q4

REPORT INFORMATION
  Report Type: 
  Country: None (occurrence: None)
  Receive Date: 20111118
  Receipt Date: 20111110
  Transmission Date: 20120403
  Serious: Yes (Hospitalization)
  Sender: FDA-Public Use
  Company Number: UG-GILEAD-2011-0046625

PATIENT
  Age: 28 Year
  Sex: Male

DRUGS (1)
  1. EMTRICITABINE/TENOFOVIR DISOPROXIL FUMARATE [Suspect]
     Indication: PROPHYLAXIS AGAINST HIV INFECTION
     Dosage: UNK
     Dates: start: 20100820

REACTIONS (2)
  - MALARIA [None]
  - UPPER RESPIRATORY TRACT INFECTION [None]
